FAERS Safety Report 15805894 (Version 1)
Quarter: 2019Q1

REPORT INFORMATION
  Report Type: Spontaneous
  Country: US (occurrence: US)
  Receive Date: 20190110
  Receipt Date: 20190110
  Transmission Date: 20190417
  Serious: No
  Sender: FDA-Public Use
  Company Number: US-AUROBINDO-AUR-APU-2017-44152

PATIENT
  Sex: Male
  Weight: 74 kg

DRUGS (1)
  1. OXYCODONE HYDROCHLORIDE TABLETS USP 15 MG [Suspect]
     Active Substance: OXYCODONE HYDROCHLORIDE
     Indication: PAIN
     Dosage: 05 TO 06 TABLETS PER DAY
     Route: 065
     Dates: start: 20171121

REACTIONS (1)
  - Drug ineffective [Unknown]
